FAERS Safety Report 10911769 (Version 1)
Quarter: 2015Q1

REPORT INFORMATION
  Report Type: Spontaneous
  Country: US (occurrence: None)
  Receive Date: 20150309
  Receipt Date: 20150309
  Transmission Date: 20150721
  Serious: Yes (Hospitalization)
  Sender: FDA-Public Use
  Company Number: CIO15012457

PATIENT
  Age: 52 Year
  Sex: Male

DRUGS (1)
  1. DEXTROMETHORPHAN [Suspect]
     Active Substance: DEXTROMETHORPHAN
     Dosage: 3 BOTTLES
     Route: 048

REACTIONS (15)
  - Acute kidney injury [None]
  - Hyporesponsive to stimuli [None]
  - Hyperhidrosis [None]
  - Hyperreflexia [None]
  - Drug screen positive [None]
  - Myoglobin blood increased [None]
  - Hypoxia [None]
  - Serotonin syndrome [None]
  - Tremor [None]
  - Incorrect dose administered [None]
  - Mental status changes [None]
  - Agitation [None]
  - Hypotension [None]
  - Rhabdomyolysis [None]
  - Intentional overdose [None]
